FAERS Safety Report 9996280 (Version 1)
Quarter: 2014Q1

REPORT INFORMATION
  Report Type: Spontaneous
  Country: CA (occurrence: CA)
  Receive Date: 20140311
  Receipt Date: 20140311
  Transmission Date: 20141002
  Serious: Yes (Hospitalization)
  Sender: FDA-Public Use
  Company Number: CA-WATSON-2014-04779

PATIENT
  Age: 62 Year
  Sex: Male

DRUGS (2)
  1. TRELSTAR (WATSON LABORATORIES) [Suspect]
     Indication: PROSTATE CANCER
     Dosage: 11.25 MG ONCE EVERY 3 MONTHS
     Route: 065
  2. GOSERELIN [Suspect]
     Indication: PROSTATE CANCER
     Dosage: UNK, UNKNOWN
     Route: 065

REACTIONS (1)
  - Acute psychosis [Recovered/Resolved]
